FAERS Safety Report 7179047-0 (Version None)
Quarter: 2010Q4

REPORT INFORMATION
  Report Type: 
  Country: None (occurrence: None)
  Receive Date: 20101221
  Receipt Date: 20101209
  Transmission Date: 20110411
  Serious: Yes (Death, Other)
  Sender: FDA-Public Use
  Company Number: IL-ELI_LILLY_AND_COMPANY-IL201012002492

PATIENT
  Age: 41 Year
  Sex: Male

DRUGS (4)
  1. ZYPREXA [Suspect]
     Indication: SCHIZOPHRENIA
     Dosage: 5 MG, UNK
  2. ZYPREXA [Suspect]
     Dosage: 10 MG, UNK
     Dates: start: 20101101
  3. VALPORAL [Concomitant]
     Indication: AFFECTIVE DISORDER
  4. DEPALEPT [Concomitant]
     Indication: AFFECTIVE DISORDER

REACTIONS (2)
  - CARDIAC ARREST [None]
  - SCHIZOPHRENIA [None]
